FAERS Safety Report 7570628-9 (Version None)
Quarter: 2011Q2

REPORT INFORMATION
  Report Type: 
  Country: None (occurrence: None)
  Receive Date: 20110624
  Receipt Date: 20110420
  Transmission Date: 20111010
  Serious: No
  Sender: FDA-Public Use
  Company Number: US-ALLERGAN-1105580US

PATIENT
  Age: 72 Year
  Sex: Female

DRUGS (4)
  1. OPCON [Concomitant]
  2. LATISSE [Suspect]
  3. LATISSE [Suspect]
     Indication: MADAROSIS
     Dosage: 1 GTT, QHS
     Route: 061
     Dates: start: 20110331, end: 20110408
  4. MASCARA [Concomitant]

REACTIONS (5)
  - MADAROSIS [None]
  - DRUG INEFFECTIVE [None]
  - EYELID EXFOLIATION [None]
  - BURNING SENSATION [None]
  - BLEPHARITIS [None]
